FAERS Safety Report 14986892 (Version 1)
Quarter: 2018Q2

REPORT INFORMATION
  Report Type: Spontaneous
  Country: DE (occurrence: DE)
  Receive Date: 20180608
  Receipt Date: 20180608
  Transmission Date: 20180711
  Serious: Yes (Death, Other)
  Sender: FDA-Public Use
  Company Number: DE-ACCORD-067836

PATIENT
  Age: 5 Decade
  Sex: Female

DRUGS (4)
  1. CYCLOPHOSPHAMIDE/CYCLOPHOSPHAMIDE MONOHYDRATE [Suspect]
     Active Substance: CYCLOPHOSPHAMIDE
     Indication: INVASIVE DUCTAL BREAST CARCINOMA
  2. PACLITAXEL/PACLITAXEL LIPOSOME [Suspect]
     Active Substance: PACLITAXEL
     Indication: INVASIVE DUCTAL BREAST CARCINOMA
     Dosage: WEEKLY PACLITAXEL (150 MG/M2)
  3. EPIRUBICIN [Suspect]
     Active Substance: EPIRUBICIN
     Indication: INVASIVE DUCTAL BREAST CARCINOMA
  4. FLUOROURACIL. [Suspect]
     Active Substance: FLUOROURACIL
     Indication: INVASIVE DUCTAL BREAST CARCINOMA

REACTIONS (19)
  - Pneumonia [Unknown]
  - Progesterone receptor assay positive [None]
  - Lung neoplasm [None]
  - Metastases to placenta [None]
  - Lung disorder [None]
  - Respiratory failure [Fatal]
  - Premature delivery [None]
  - Invasive ductal breast carcinoma [None]
  - Metastases to liver [None]
  - Metastases to breast [None]
  - Maternal exposure during pregnancy [None]
  - Lymphadenopathy [None]
  - Pregnancy [None]
  - Caesarean section [None]
  - Breast cancer recurrent [None]
  - Placental necrosis [None]
  - Nausea [Unknown]
  - Malignant neoplasm progression [None]
  - Ovarian vein thrombosis [None]
